FAERS Safety Report 8968337 (Version 2)
Quarter: 2013Q1

REPORT INFORMATION
  Report Type: Spontaneous
  Country: TR (occurrence: TR)
  Receive Date: 20121217
  Receipt Date: 20130108
  Transmission Date: 20140127
  Serious: Yes (Death)
  Sender: FDA-Public Use
  Company Number: TR-ABBOTT-12P-161-1021291-00

PATIENT
  Age: 47 Year
  Sex: Male
  Weight: 95 kg

DRUGS (3)
  1. TARKA FORTE [Suspect]
     Indication: HYPERTENSION
     Dosage: 240/4MG
     Route: 048
     Dates: start: 20121202, end: 20121209
  2. FLUDEX [Interacting]
     Indication: HYPERTENSION
     Dates: start: 20121207, end: 20121209
  3. VERMIDON [Concomitant]
     Indication: PRODUCT USED FOR UNKNOWN INDICATION
     Dates: start: 20121205, end: 20121205

REACTIONS (5)
  - Completed suicide [Fatal]
  - Drug interaction [Fatal]
  - Intentional overdose [Fatal]
  - Hypertension [Unknown]
  - Chemical poisoning [Fatal]
